FAERS Safety Report 6367771-9 (Version None)
Quarter: 2009Q3

REPORT INFORMATION
  Report Type: 
  Country: None (occurrence: None)
  Receive Date: 20090921
  Receipt Date: 20090916
  Transmission Date: 20100115
  Serious: Yes (Life-Threatening, Hospitalization)
  Sender: FDA-Public Use
  Company Number: GB-TEVA-205918ISR

PATIENT
  Age: 17 Year
  Sex: Female
  Weight: 53.968 kg

DRUGS (1)
  1. SERTRALINE HCL [Suspect]
     Indication: DEPRESSION
     Route: 048
     Dates: start: 20090301

REACTIONS (9)
  - ANXIETY [None]
  - ARRHYTHMIA [None]
  - CARDIAC ARREST [None]
  - DEPRESSED MOOD [None]
  - FALL [None]
  - FATIGUE [None]
  - HYPOTENSION [None]
  - SINUS ARREST [None]
  - VIRAL INFECTION [None]
